FAERS Safety Report 8859982 (Version 1)
Quarter: 2012Q4

REPORT INFORMATION
  Report Type: 
  Country: US (occurrence: US)
  Receive Date: 20121025
  Receipt Date: 20121025
  Transmission Date: 20130627
  Serious: No
  Sender: FDA-Public Use
  Company Number: US-BAYER-2012-099138

PATIENT
  Sex: Female

DRUGS (1)
  1. SAFYRAL [Suspect]
     Indication: MENSTRUAL IRREGULARITY
     Dosage: UNK
     Dates: start: 2012

REACTIONS (1)
  - No adverse event [None]
